FAERS Safety Report 12321060 (Version 1)
Quarter: 2016Q2

REPORT INFORMATION
  Report Type: Spontaneous
  Country: CH (occurrence: CH)
  Receive Date: 20160502
  Receipt Date: 20160502
  Transmission Date: 20160815
  Serious: Yes (Life-Threatening, Hospitalization)
  Sender: FDA-Public Use
  Company Number: CH-CLINIGEN GROUP PLC/ CLINIGEN HEALTHCARE LTD-CH-CLGN-15-00062

PATIENT
  Age: 50 Year
  Sex: Male

DRUGS (18)
  1. FOSCAVIR [Suspect]
     Active Substance: FOSCARNET SODIUM
     Indication: CYTOMEGALOVIRUS INFECTION
     Dates: start: 2012, end: 2012
  2. VALGANCICLOVIR. [Concomitant]
     Active Substance: VALGANCICLOVIR
     Indication: CYTOMEGALOVIRUS INFECTION
     Dates: start: 2012, end: 2012
  3. FOSCAVIR [Suspect]
     Active Substance: FOSCARNET SODIUM
     Dates: start: 20130403, end: 20130831
  4. RITUXIMAB [Concomitant]
     Active Substance: RITUXIMAB
     Indication: PRODUCT USED FOR UNKNOWN INDICATION
  5. METHYLPREDNISOLONE. [Concomitant]
     Active Substance: METHYLPREDNISOLONE
     Dates: start: 2014, end: 2014
  6. FLUDARABINE [Concomitant]
     Active Substance: FLUDARABINE PHOSPHATE
     Indication: BONE MARROW CONDITIONING REGIMEN
  7. CIDOFOVIR. [Concomitant]
     Active Substance: CIDOFOVIR
     Indication: PRODUCT USED FOR UNKNOWN INDICATION
     Route: 042
     Dates: start: 2012, end: 2012
  8. METHYLPREDNISOLONE. [Concomitant]
     Active Substance: METHYLPREDNISOLONE
     Indication: ACUTE GRAFT VERSUS HOST DISEASE
     Dates: start: 2011, end: 2012
  9. LEFLUNOMIDE. [Concomitant]
     Active Substance: LEFLUNOMIDE
     Indication: PRODUCT USED FOR UNKNOWN INDICATION
     Dates: start: 2013, end: 2013
  10. CYCLOPHOSPHAMIDE. [Concomitant]
     Active Substance: CYCLOPHOSPHAMIDE
     Indication: BONE MARROW CONDITIONING REGIMEN
  11. FOSCAVIR [Suspect]
     Active Substance: FOSCARNET SODIUM
     Dates: start: 201212, end: 2013
  12. MARIBAVIR [Concomitant]
     Active Substance: MARIBAVIR
     Indication: CYTOMEGALOVIRUS INFECTION
     Dates: start: 2013, end: 2014
  13. PROBENICIDE [Concomitant]
     Indication: PRODUCT USED FOR UNKNOWN INDICATION
  14. CYCLOSPORINE. [Concomitant]
     Active Substance: CYCLOSPORINE
     Indication: PRODUCT USED FOR UNKNOWN INDICATION
     Dates: start: 2011, end: 2012
  15. CYCLOSPORINE. [Concomitant]
     Active Substance: CYCLOSPORINE
     Dates: start: 2013, end: 2014
  16. METHYLPREDNISOLONE. [Concomitant]
     Active Substance: METHYLPREDNISOLONE
     Dates: start: 2013, end: 2014
  17. METHYLPREDNISOLONE. [Concomitant]
     Active Substance: METHYLPREDNISOLONE
     Indication: HAEMOLYTIC ANAEMIA
     Route: 065
     Dates: start: 2012, end: 2012
  18. ARTESUNATE [Concomitant]
     Active Substance: ARTESUNATE
     Indication: CYTOMEGALOVIRUS INFECTION
     Dates: start: 2013, end: 2013

REACTIONS (2)
  - Cytomegalovirus chorioretinitis [Unknown]
  - Drug resistance [Recovered/Resolved]

NARRATIVE: CASE EVENT DATE: 201112
